FAERS Safety Report 6386968-5 (Version None)
Quarter: 2009Q4

REPORT INFORMATION
  Report Type: 
  Country: None (occurrence: None)
  Receive Date: 20091002
  Receipt Date: 20090923
  Transmission Date: 20100525
  Serious: Yes (Hospitalization)
  Sender: FDA-Public Use
  Company Number: US-WATSON-2009-07917

PATIENT
  Sex: Male

DRUGS (9)
  1. FUROSEMIDE (WATSON LABORATORIES) [Suspect]
     Indication: OEDEMA
     Dosage: 1 TABLET, M, W, F
     Route: 048
     Dates: start: 20040101
  2. FUROSEMIDE (WATSON LABORATORIES) [Suspect]
     Dosage: 0.5 TABLET, T, TH, SAT, SUN
     Route: 048
     Dates: start: 20040101
  3. MINOXIDIL (WATSON LABORATORIES) [Suspect]
     Indication: BLOOD PRESSURE
     Dosage: 2.5 MG, BID
     Route: 048
     Dates: start: 20050101
  4. KLOR-CON M20 [Suspect]
     Indication: BLOOD PRESSURE
     Dosage: 2 TABLETS, Q AM  M, W, F
     Route: 048
     Dates: start: 20050101
  5. KLOR-CON M20 [Suspect]
     Dosage: 1 TABLET, Q AM T, TH, SAT, SUN
     Route: 048
     Dates: start: 20050101
  6. KLOR-CON M20 [Suspect]
     Dosage: 2 TABLET, Q PM ALL 7 DAYS/WEEK
     Dates: start: 20050101
  7. DIOVAN [Suspect]
     Indication: BLOOD PRESSURE
     Dosage: 160/12.5 MG, UNK
     Route: 048
  8. TEGRETOL [Concomitant]
     Indication: CONVULSION
     Dosage: UNK
     Route: 065
  9. CATAPRES                           /00171101/ [Concomitant]
     Indication: BLOOD PRESSURE
     Dosage: UNK
     Route: 065
     Dates: start: 20040101

REACTIONS (2)
  - DRUG INEFFECTIVE [None]
  - HYPERTENSION [None]
